FAERS Safety Report 4836409-1 (Version None)
Quarter: 2005Q4

REPORT INFORMATION
  Report Type: 
  Country: None (occurrence: None)
  Receive Date: 20051123
  Receipt Date: 20051118
  Transmission Date: 20060501
  Serious: Yes (Life-Threatening)
  Sender: FDA-Public Use
  Company Number: PHEH2005US12762

PATIENT

DRUGS (2)
  1. FOCALIN XR [Suspect]
     Dosage: 20 MG, QD
     Route: 048
  2. FOCALIN XR [Suspect]
     Dosage: 10 MG, QD
     Route: 048

REACTIONS (2)
  - DRUG INEFFECTIVE [None]
  - SUICIDE ATTEMPT [None]
